FAERS Safety Report 7315829-X (Version None)
Quarter: 2011Q1

REPORT INFORMATION
  Report Type: 
  Country: None (occurrence: None)
  Receive Date: 20110225
  Receipt Date: 20110217
  Transmission Date: 20110831
  Serious: Yes (Congenital Anomaly, Other)
  Sender: FDA-Public Use
  Company Number: TR-ABBOTT-11P-161-0705731-00

PATIENT
  Age: 1 Day
  Sex: Female

DRUGS (1)
  1. VALPROATE SODIUM [Suspect]
     Indication: DRUG EXPOSURE DURING PREGNANCY
     Route: 064

REACTIONS (26)
  - PULMONARY ARTERY STENOSIS CONGENITAL [None]
  - LOW SET EARS [None]
  - CONGENITAL JOINT MALFORMATION [None]
  - CARDIOMEGALY [None]
  - HYPOTONIA [None]
  - DYSMORPHISM [None]
  - ARACHNODACTYLY [None]
  - CRANIOSYNOSTOSIS [None]
  - HYDROCEPHALUS [None]
  - CAMPTODACTYLY CONGENITAL [None]
  - FOETAL ANTICONVULSANT SYNDROME [None]
  - DRUG EXPOSURE DURING PREGNANCY [None]
  - CONGENITAL HYDROCEPHALUS [None]
  - RENAL HYPOPLASIA [None]
  - EBSTEIN'S ANOMALY [None]
  - PECTUS EXCAVATUM [None]
  - CONGENITAL CARDIOVASCULAR ANOMALY [None]
  - SKULL MALFORMATION [None]
  - MICROPHTHALMOS [None]
  - OPTIC NERVE HYPOPLASIA [None]
  - RESPIRATORY DISTRESS [None]
  - COARCTATION OF THE AORTA [None]
  - CONGENITAL CYSTIC KIDNEY DISEASE [None]
  - ATRIAL SEPTAL DEFECT [None]
  - CONGENITAL NOSE MALFORMATION [None]
  - MICROGNATHIA [None]
